FAERS Safety Report 5150829-X (Version None)
Quarter: 2006Q4

REPORT INFORMATION
  Report Type: 
  Country: None (occurrence: None)
  Receive Date: 20061108
  Receipt Date: 20061025
  Transmission Date: 20070319
  Serious: Yes (Disabling)
  Sender: FDA-Public Use
  Company Number: 149161ISR

PATIENT
  Age: 76 Year
  Sex: Female

DRUGS (1)
  1. CIPROFLOXACIN [Suspect]
     Indication: PROPHYLAXIS
     Dosage: 500 MG (250 MG, 2 IN 1 D); ORAL
     Route: 048
     Dates: start: 20060927, end: 20061002

REACTIONS (2)
  - ANAL DISCOMFORT [None]
  - SWELLING [None]
